FAERS Safety Report 5570305-X (Version None)
Quarter: 2007Q4

REPORT INFORMATION
  Report Type: 
  Country: None (occurrence: None)
  Receive Date: 20071219
  Receipt Date: 20071219
  Transmission Date: 20080405
  Serious: Yes (Death, Hospitalization)
  Sender: FDA-Public Use
  Company Number: None

PATIENT
  Sex: Male
  Weight: 16 kg

DRUGS (5)
  1. CYCLOPHOSPHAMIDE [Suspect]
     Dosage: 1425 MG
  2. CYTARABINE [Suspect]
     Dosage: 832 MG
  3. MERCAPTOPURINE [Suspect]
     Dosage: 1200 MG
  4. PEG-L- ASPARAGINASE (K-H) [Suspect]
     Dosage: 3450 MG
  5. VINCRISTINE SULFATE [Suspect]
     Dosage: 4 MG

REACTIONS (19)
  - ACTIVATED PARTIAL THROMBOPLASTIN TIME PROLONGED [None]
  - AGGRESSION [None]
  - AGITATION [None]
  - ASPARTATE AMINOTRANSFERASE INCREASED [None]
  - BLOOD BILIRUBIN INCREASED [None]
  - BLOOD GLUCOSE DECREASED [None]
  - BLOOD UREA INCREASED [None]
  - CARBON DIOXIDE DECREASED [None]
  - CHEST X-RAY ABNORMAL [None]
  - DIARRHOEA [None]
  - GRUNTING [None]
  - HYPOTENSION [None]
  - LIP DISCOLOURATION [None]
  - MENTAL STATUS CHANGES [None]
  - PSEUDOMONAS INFECTION [None]
  - RESPIRATORY FAILURE [None]
  - SEPTIC SHOCK [None]
  - SOMNOLENCE [None]
  - TACHYCARDIA [None]
